FAERS Safety Report 7991100-8 (Version None)
Quarter: 2011Q4

REPORT INFORMATION
  Report Type: 
  Country: None (occurrence: None)
  Receive Date: 20111219
  Receipt Date: 20111209
  Transmission Date: 20120403
  Serious: Yes (Death)
  Sender: FDA-Public Use
  Company Number: DE-UCBSA-047491

PATIENT
  Sex: Female
  Weight: 60 kg

DRUGS (7)
  1. ACETYLCYSTEINE [Concomitant]
     Route: 048
  2. PANTOPRAZOLE SODIUM [Concomitant]
     Route: 048
  3. TORSEMIDE [Concomitant]
     Route: 048
  4. ALLOPURINOL [Concomitant]
  5. KEPPRA [Suspect]
     Dates: start: 20111128, end: 20110101
  6. CIPROFLOXACIN [Concomitant]
     Route: 048
     Dates: start: 20111125, end: 20110101
  7. JENASPIRON [Concomitant]
     Indication: HEPATORENAL SYNDROME

REACTIONS (1)
  - PANCYTOPENIA [None]
